FAERS Safety Report 4641084-5 (Version None)
Quarter: 2005Q2

REPORT INFORMATION
  Report Type: 
  Country: None (occurrence: None)
  Receive Date: 20050324
  Receipt Date: 20050125
  Transmission Date: 20051028
  Serious: Yes (Hospitalization)
  Sender: FDA-Public Use
  Company Number: 212002

PATIENT
  Age: 62 Year
  Sex: Female
  Weight: 67.6 kg

DRUGS (6)
  1. AVASTIN [Suspect]
     Indication: COLORECTAL CANCER METASTATIC
     Dosage: 341 MG, INTRAVENOUS
     Route: 042
     Dates: start: 20041229
  2. FLUOROURACIL [Concomitant]
  3. IRINOTECAN HCL [Concomitant]
  4. LEUCOVORIN CALCIUM [Concomitant]
  5. EFFEXOR [Concomitant]
  6. PROTONIX [Concomitant]

REACTIONS (1)
  - HAEMORRHAGIC STROKE [None]
